FAERS Safety Report 5508417-9 (Version None)
Quarter: 2007Q4

REPORT INFORMATION
  Report Type: 
  Country: None (occurrence: None)
  Receive Date: 20071107
  Receipt Date: 20071030
  Transmission Date: 20080405
  Serious: Yes (Other)
  Sender: FDA-Public Use
  Company Number: DE-WYE-G00545107

PATIENT
  Sex: Male

DRUGS (2)
  1. VENLAFAXINE HCL [Suspect]
     Dosage: 4 TABLETS (600 MG)
     Route: 048
     Dates: start: 20071030, end: 20071030
  2. BROMAZANIL [Suspect]
     Dosage: 4 TABLETS (24 MG)
     Route: 048
     Dates: start: 20071030, end: 20071030

REACTIONS (3)
  - DEPRESSED LEVEL OF CONSCIOUSNESS [None]
  - DRUG ABUSE [None]
  - INTENTIONAL OVERDOSE [None]
